FAERS Safety Report 10077705 (Version 2)
Quarter: 2014Q2

REPORT INFORMATION
  Report Type: Report from Study
  Country: FI (occurrence: FI)
  Receive Date: 20140414
  Receipt Date: 20140529
  Transmission Date: 20141212
  Serious: Yes (Hospitalization, Other)
  Sender: FDA-Public Use
  Company Number: PHHY2014FI045462

PATIENT
  Age: 37 Year
  Sex: Male

DRUGS (2)
  1. LEPONEX [Suspect]
     Dosage: UNK UKN, UNK
  2. LEPONEX [Suspect]
     Dosage: 550 MG DAILY

REACTIONS (3)
  - Endocarditis [Not Recovered/Not Resolved]
  - Neutrophil count decreased [Not Recovered/Not Resolved]
  - White blood cell count decreased [Not Recovered/Not Resolved]
